FAERS Safety Report 6741958-5 (Version None)
Quarter: 2010Q2

REPORT INFORMATION
  Report Type: 
  Country: None (occurrence: None)
  Receive Date: 20100526
  Receipt Date: 20100517
  Transmission Date: 20101027
  Serious: Yes (Other)
  Sender: FDA-Public Use
  Company Number: FR-ROCHE-704643

PATIENT

DRUGS (7)
  1. MYCOPHENOLATE MOFETIL [Suspect]
     Indication: IMMUNOSUPPRESSION
     Route: 065
  2. RITUXIMAB [Suspect]
     Indication: NEPHROTIC SYNDROME
     Dosage: RECEIVED 7 INFUSIONS
     Route: 042
  3. PREDNISONE TAB [Suspect]
     Indication: IMMUNOSUPPRESSION
     Route: 048
  4. CYCLOSPORINE [Suspect]
     Indication: IMMUNOSUPPRESSION
     Route: 065
  5. DEXCHLORPHENIRAMINE MALEATE [Concomitant]
     Dosage: DOSE: 2.5 TO 5.0 MG
     Route: 042
  6. METHYLPREDNISOLONE [Concomitant]
     Dosage: DOSE: 0.5 MG/KG, BODY WEIGHT (BW))
     Route: 042
  7. COTRIM [Concomitant]
     Indication: ANTIFUNGAL PROPHYLAXIS

REACTIONS (1)
  - CYTOLYTIC HEPATITIS [None]
